FAERS Safety Report 5420945-3 (Version None)
Quarter: 2007Q3

REPORT INFORMATION
  Report Type: 
  Country: None (occurrence: None)
  Receive Date: 20070817
  Receipt Date: 20070806
  Transmission Date: 20080115
  Serious: Yes (Other)
  Sender: FDA-Public Use
  Company Number: 2007AP000845

PATIENT
  Age: 38 Year
  Sex: Male

DRUGS (7)
  1. PAROXETINE HCL [Suspect]
     Indication: ANXIETY
     Dosage: 20 MG;QD;PO
     Route: 048
     Dates: start: 20070713, end: 20070718
  2. PAROXETINE HCL [Suspect]
     Indication: DEPRESSION
     Dosage: 20 MG;QD;PO
     Route: 048
     Dates: start: 20070713, end: 20070718
  3. PAXIL [Concomitant]
  4. FLUTICASOEN PROPIONTE [Concomitant]
  5. SALMETEROL XINAFOATE [Concomitant]
  6. FEXOFENADINE HYDROCHLORIDE [Concomitant]
  7. PSEUDOEPHEDRINE HYDROCHLORIDE [Concomitant]

REACTIONS (9)
  - ARTHRALGIA [None]
  - DIZZINESS [None]
  - EYE MOVEMENT DISORDER [None]
  - HEADACHE [None]
  - INCOHERENT [None]
  - MUSCLE FATIGUE [None]
  - NAUSEA [None]
  - PHARMACEUTICAL PRODUCT COMPLAINT [None]
  - PYREXIA [None]
